FAERS Safety Report 5465789-1 (Version None)
Quarter: 2007Q3

REPORT INFORMATION
  Report Type: 
  Country: None (occurrence: None)
  Receive Date: 20070924
  Receipt Date: 20070919
  Transmission Date: 20080115
  Serious: Yes (Other)
  Sender: FDA-Public Use
  Company Number: D0053964A

PATIENT
  Age: 31 Year
  Sex: Male
  Weight: 70 kg

DRUGS (1)
  1. ZOVIRAX [Suspect]
     Route: 048
     Dates: start: 20070710, end: 20070710

REACTIONS (4)
  - ACCIDENTAL EXPOSURE [None]
  - AGGRESSION [None]
  - MYDRIASIS [None]
  - PYREXIA [None]
